FAERS Safety Report 10221522 (Version 1)
Quarter: 2014Q1

REPORT INFORMATION
  Report Type: Spontaneous
  Country: US (occurrence: None)
  Receive Date: 20140306
  Receipt Date: 20140306
  Transmission Date: 20141002
  Serious: Yes (Other)
  Sender: FDA-Public Use
  Company Number: 163-21880-13101446

PATIENT
  Sex: Female
  Weight: 71.3 kg

DRUGS (3)
  1. REVLIMID (LENALIDOMIDE) (CAPSULES) [Suspect]
     Indication: PLASMA CELL LEUKAEMIA
     Dosage: 21 IN 21 D
     Route: 048
     Dates: start: 201205, end: 201301
  2. VELCADE (BORTEZOMIB) [Concomitant]
  3. DEXAMETHASONE  (DEXAMETHASONE) (UNKNOWN) [Concomitant]

REACTIONS (1)
  - Pancytopenia [None]
